FAERS Safety Report 7334496-2 (Version None)
Quarter: 2011Q1

REPORT INFORMATION
  Report Type: 
  Country: None (occurrence: None)
  Receive Date: 20110307
  Receipt Date: 20110207
  Transmission Date: 20110831
  Serious: No
  Sender: FDA-Public Use
  Company Number: US-B.I. PHARMACEUTICALS,INC./RIDGEFIELD-2011-BP-03830BP

PATIENT
  Sex: Female

DRUGS (23)
  1. PRADAXA [Suspect]
     Indication: ATRIAL FIBRILLATION
     Dosage: 300 MG
     Route: 048
     Dates: start: 20110114
  2. HYDROCODONE BITARTRATE + ACETAMINOPHEN [Concomitant]
     Indication: ARTHRALGIA
     Route: 048
  3. CINNAMON [Concomitant]
     Indication: PROPHYLAXIS
     Dosage: 2000 MG
     Route: 048
  4. FISH OIL [Concomitant]
     Indication: PROPHYLAXIS
     Dosage: 1200 MG
     Route: 048
  5. FLOVENT [Concomitant]
     Indication: ASTHMA
     Route: 055
  6. NEUROPATH B [Concomitant]
     Indication: DIABETIC NEUROPATHY
     Route: 048
  7. MAXZIDE/HCTZ [Concomitant]
     Route: 048
  8. ALLOPURINOL [Concomitant]
     Indication: GOUT
     Route: 048
  9. METFORMIN [Concomitant]
     Indication: DIABETES MELLITUS
     Dosage: 1 G
     Route: 048
  10. COLACE [Concomitant]
     Indication: CONSTIPATION PROPHYLAXIS
     Route: 048
  11. TIAZAC [Concomitant]
     Indication: HYPERTENSION
     Dosage: 480 MG
     Route: 048
  12. LESCOL [Concomitant]
     Indication: BLOOD CHOLESTEROL INCREASED
     Dosage: 40 MG
     Route: 048
  13. VENTOLIN [Concomitant]
     Indication: ASTHMA
     Route: 055
  14. MAGNESIUM [Concomitant]
     Indication: HYPOMAGNESAEMIA
     Dosage: 400 MG
     Route: 048
  15. BIOTIN [Concomitant]
     Indication: ALOPECIA
     Dosage: 5000 MCG
     Route: 048
  16. ASPIRIN [Concomitant]
     Indication: PROPHYLAXIS
     Dosage: 81 MG
     Route: 048
  17. NEURONTIN [Concomitant]
     Indication: DIABETIC NEUROPATHY
     Dosage: 600 MG
     Route: 048
  18. FLEXERIL [Concomitant]
     Indication: ARTHRALGIA
     Dosage: 30 MG
     Route: 048
  19. VITAMIN D [Concomitant]
     Indication: PROPHYLAXIS
     Dosage: 1000 U
     Route: 048
  20. ATACAND [Concomitant]
     Dosage: 16 MG
     Route: 048
  21. ZINC [Concomitant]
     Indication: PROPHYLAXIS
     Dosage: 50 MG
     Route: 048
  22. CALCIUM [Concomitant]
     Indication: PROPHYLAXIS
     Dosage: 1000 MG
     Route: 048
  23. CELEBREX [Concomitant]
     Indication: ARTHRITIS
     Dosage: 200 MG
     Route: 048

REACTIONS (4)
  - EPISTAXIS [None]
  - DYSPEPSIA [None]
  - HAEMATOCHEZIA [None]
  - ANAL FISSURE [None]
